FAERS Safety Report 5121055-5 (Version None)
Quarter: 2006Q4

REPORT INFORMATION
  Report Type: 
  Country: None (occurrence: None)
  Receive Date: 20061005
  Receipt Date: 20060524
  Transmission Date: 20070319
  Serious: Yes (Other)
  Sender: FDA-Public Use
  Company Number: US-NOVOPROD-253643

PATIENT
  Age: 40 Year
  Sex: Male

DRUGS (8)
  1. NOVOLOG MIX 70/30 [Suspect]
     Indication: INSULIN-REQUIRING TYPE II DIABETES MELLITUS
     Dosage: 21-23 IU, QD
     Route: 058
     Dates: start: 20040301, end: 20050101
  2. LANTUS [Concomitant]
     Indication: INSULIN-REQUIRING TYPE II DIABETES MELLITUS
     Route: 058
     Dates: start: 20040301
  3. COREG [Concomitant]
     Indication: CARDIAC DISORDER
     Route: 048
  4. ZOLOFT                             /01011401/ [Concomitant]
     Indication: DEPRESSION
     Route: 048
  5. LORAZEPAM [Concomitant]
     Indication: DEPRESSION
     Route: 048
  6. VYTORIN [Concomitant]
     Indication: BLOOD CHOLESTEROL INCREASED
     Route: 048
  7. ASPIRIN [Concomitant]
     Indication: PROPHYLAXIS
     Route: 048
  8. NOVOLOG [Suspect]
     Indication: INSULIN-REQUIRING TYPE II DIABETES MELLITUS

REACTIONS (4)
  - BLOOD GLUCOSE FLUCTUATION [None]
  - MYOCARDIAL INFARCTION [None]
  - PANIC ATTACK [None]
  - WRONG DRUG ADMINISTERED [None]
